FAERS Safety Report 7897751-3 (Version None)
Quarter: 2011Q4

REPORT INFORMATION
  Report Type: 
  Country: None (occurrence: None)
  Receive Date: 20111107
  Receipt Date: 20111101
  Transmission Date: 20120403
  Serious: Yes (Other)
  Sender: FDA-Public Use
  Company Number: CA-ROCHE-790150

PATIENT
  Sex: Female
  Weight: 61.29 kg

DRUGS (15)
  1. FRISIUM [Concomitant]
  2. CLONAZEPAM [Concomitant]
     Dosage: PRN
  3. SOLUCORT [Concomitant]
     Dosage: REPORTED:SOLUCORTEF
     Route: 042
     Dates: start: 20110708
  4. ALENDRONATE SODIUM [Concomitant]
  5. CALCIUM [Concomitant]
  6. KEPPRA [Concomitant]
  7. MORPHINE SULFATE [Concomitant]
  8. FRISIUM [Concomitant]
  9. ACETAMINOFEN [Concomitant]
     Route: 048
     Dates: start: 20110708
  10. AVASTIN [Suspect]
     Indication: GLIOBLASTOMA
     Route: 042
     Dates: start: 20110708, end: 20111013
  11. VITAMIN D [Concomitant]
  12. STATEX (CANADA) [Concomitant]
  13. DECADRON [Concomitant]
  14. PANTOPRAZOLE SODIUM [Concomitant]
  15. BENADRYL [Concomitant]
     Route: 048
     Dates: start: 20110708

REACTIONS (2)
  - CONVULSION [None]
  - DISEASE PROGRESSION [None]
